FAERS Safety Report 7635291-7 (Version None)
Quarter: 2011Q3

REPORT INFORMATION
  Report Type: 
  Country: None (occurrence: None)
  Receive Date: 20110726
  Receipt Date: 20110713
  Transmission Date: 20111222
  Serious: Yes (Other)
  Sender: FDA-Public Use
  Company Number: GB-UCBSA-037162

PATIENT
  Sex: Male

DRUGS (3)
  1. HYDROXYCARBAMIDE MEDAC [Concomitant]
     Indication: CHRONIC MYELOID LEUKAEMIA
  2. NEUPRO [Suspect]
     Dosage: 2 MG
     Dates: start: 20101025, end: 20110620
  3. SINEMET [Concomitant]

REACTIONS (4)
  - APPLICATION SITE PRURITUS [None]
  - APPLICATION SITE VESICLES [None]
  - CHRONIC MYELOID LEUKAEMIA [None]
  - APPLICATION SITE ERYTHEMA [None]
